FAERS Safety Report 4917524-0 (Version None)
Quarter: 2006Q1

REPORT INFORMATION
  Report Type: 
  Country: None (occurrence: None)
  Receive Date: 20060221
  Receipt Date: 20050629
  Transmission Date: 20060701
  Serious: Yes (Hospitalization)
  Sender: FDA-Public Use
  Company Number: US-MERCK-0506USA04329

PATIENT
  Age: 61 Year
  Sex: Male

DRUGS (1)
  1. VIOXX [Suspect]
     Route: 048

REACTIONS (6)
  - ARTERIOSCLEROSIS CORONARY ARTERY [None]
  - BUNDLE BRANCH BLOCK RIGHT [None]
  - CORONARY ARTERY DISEASE [None]
  - MYOCARDIAL INFARCTION [None]
  - OVERDOSE [None]
  - VENTRICULAR DYSFUNCTION [None]
